FAERS Safety Report 8356640-0 (Version None)
Quarter: 2012Q2

REPORT INFORMATION
  Report Type: 
  Country: None (occurrence: None)
  Receive Date: 20120514
  Receipt Date: 20120509
  Transmission Date: 20120825
  Serious: Yes (Death)
  Sender: FDA-Public Use
  Company Number: PHHY2012KE039398

PATIENT
  Age: 47 Year
  Sex: Male
  Weight: 88.6 kg

DRUGS (2)
  1. GLEEVEC [Suspect]
     Indication: GASTROINTESTINAL STROMAL TUMOUR
     Dosage: 400 MG, DAILY
     Dates: start: 20051013, end: 20120221
  2. GLEEVEC [Suspect]
     Dosage: 800 MG, DAILY
     Dates: start: 20120221

REACTIONS (3)
  - HAEMATOLOGY TEST ABNORMAL [None]
  - GENERAL PHYSICAL HEALTH DETERIORATION [None]
  - GASTROINTESTINAL STROMAL TUMOUR [None]
